FAERS Safety Report 8840875 (Version 1)
Quarter: 2012Q4

REPORT INFORMATION
  Report Type: 
  Country: US (occurrence: US)
  Receive Date: 20121015
  Receipt Date: 20121015
  Transmission Date: 20130627
  Serious: Yes (Hospitalization)
  Sender: FDA-Public Use
  Company Number: US-ASTRAZENECA-2012SE76848

PATIENT
  Age: 73 Year
  Sex: Female
  Weight: 46.4 kg

DRUGS (8)
  1. SYMBICORT PMDI [Suspect]
     Dosage: 80/4.5 MCG, TWO PUFFS TWICE A DAY
     Route: 055
  2. TESSALON [Concomitant]
  3. NITROSTAT [Concomitant]
     Dosage: 1 TABLET UNDER TEH TONGUE EVERY 8 HOURS
  4. DUONEB [Concomitant]
     Dosage: 0.5-2.5 MG/ 3 ML SOLUTION, 3 ML FOUR TIMES A DAY
  5. ATIVAN [Concomitant]
  6. PROVENTIL [Concomitant]
     Dosage: 2 PUFFS AS NEEDED EVERY FOUR HOURS
  7. DULCOLAX [Concomitant]
  8. SPIRIVA [Concomitant]

REACTIONS (9)
  - Sputum discoloured [Unknown]
  - Depression [Unknown]
  - Anxiety [Unknown]
  - Angina pectoris [Unknown]
  - Pneumonia [Unknown]
  - Chronic obstructive pulmonary disease [Unknown]
  - Dyspnoea [Unknown]
  - Emphysema [Unknown]
  - Fatigue [Unknown]
